FAERS Safety Report 8758270 (Version 1)
Quarter: 2012Q4

REPORT INFORMATION
  Report Type: 
  Country: US (occurrence: US)
  Receive Date: 20120829
  Receipt Date: 20120829
  Transmission Date: 20130627
  Serious: Yes (Other)
  Sender: FDA-Public Use
  Company Number: US-ASTELLAS-2012US007184

PATIENT
  Age: 86 Year
  Sex: Female

DRUGS (2)
  1. VESICARE [Suspect]
     Indication: PRODUCT USED FOR UNKNOWN INDICATION
     Dosage: 5 mg, Unknown/D
     Route: 048
     Dates: start: 2011
  2. VESICARE [Suspect]
     Dosage: 5 mg, Unknown/D
     Route: 048
     Dates: start: 201205

REACTIONS (1)
  - Visual impairment [Unknown]
